FAERS Safety Report 7722420-X (Version None)
Quarter: 2011Q3

REPORT INFORMATION
  Report Type: 
  Country: None (occurrence: None)
  Receive Date: 20110831
  Receipt Date: 20110824
  Transmission Date: 20111222
  Serious: Yes (Hospitalization)
  Sender: FDA-Public Use
  Company Number: GB-CEPHALON-2011001594

PATIENT
  Sex: Male

DRUGS (15)
  1. METFORMIN [Concomitant]
     Dates: start: 20110315
  2. COTRIM [Concomitant]
     Dates: start: 20110324
  3. ACYCLOVIR [Concomitant]
  4. GLICLAZIDE [Concomitant]
  5. LANSOPRAZOLE [Concomitant]
     Dates: start: 20110325
  6. DALTEPARIN SODIUM [Concomitant]
     Dates: start: 20110324
  7. AMLODIPINE [Concomitant]
     Dates: start: 20040101
  8. TENORMIN [Concomitant]
     Dates: start: 20100301
  9. TREANDA [Suspect]
     Indication: MULTIPLE MYELOMA
     Route: 042
     Dates: start: 20110324
  10. THALIDOMIDE [Suspect]
     Indication: MULTIPLE MYELOMA
     Route: 048
     Dates: start: 20110324
  11. ALLOPURINOL [Concomitant]
     Dates: start: 20110327, end: 20110328
  12. DIFLUCAN [Concomitant]
     Dates: start: 20110324
  13. GABAPENTIN [Concomitant]
     Dates: start: 20110201
  14. AMITRIPTYLENE [Concomitant]
     Dates: start: 20100702
  15. DEXAMETHASONE [Suspect]
     Indication: MULTIPLE MYELOMA
     Route: 048
     Dates: start: 20110324, end: 20110331

REACTIONS (1)
  - GASTROENTERITIS NOROVIRUS [None]
